FAERS Safety Report 23487081 (Version 1)
Quarter: 2024Q1

REPORT INFORMATION
  Report Type: Spontaneous
  Country: FR (occurrence: FR)
  Receive Date: 20240206
  Receipt Date: 20240206
  Transmission Date: 20240410
  Serious: Yes (Other)
  Sender: FDA-Public Use
  Company Number: None

PATIENT
  Age: 52 Year
  Sex: Female

DRUGS (8)
  1. CYCLOPHOSPHAMIDE [Suspect]
     Active Substance: CYCLOPHOSPHAMIDE
     Indication: Breast cancer
     Dosage: UNK
     Route: 042
     Dates: start: 20230607, end: 20230719
  2. DOCETAXEL [Suspect]
     Active Substance: DOCETAXEL\DOCETAXEL ANHYDROUS
     Indication: Breast cancer
     Dosage: UNK
     Route: 042
     Dates: start: 20230809, end: 20230809
  3. TRASTUZUMAB [Suspect]
     Active Substance: TRASTUZUMAB
     Indication: Breast cancer
     Dosage: 100 MG, EVERY 1 WK, ((MAMMAL/HAMSTER/CELLULES CHO))
     Route: 042
     Dates: start: 20230830, end: 20231019
  4. TRASTUZUMAB [Suspect]
     Active Substance: TRASTUZUMAB
     Dosage: 300 MG, EVERY 3 WK, ((MAMMAL/HAMSTER/CELLULES CHO))
     Route: 042
     Dates: start: 20231019
  5. PACLITAXEL [Suspect]
     Active Substance: PACLITAXEL
     Indication: Breast cancer
     Dosage: 90 MG, EVERY 3 WK
     Route: 042
     Dates: start: 20230914, end: 20231019
  6. PACLITAXEL [Suspect]
     Active Substance: PACLITAXEL
     Dosage: 114 MG, EVERY 3 WK
     Route: 042
     Dates: start: 20230830, end: 20230914
  7. EPIRUBICIN [Suspect]
     Active Substance: EPIRUBICIN
     Indication: Breast cancer
     Dosage: 150 MG, EVERY 3 WK
     Route: 042
     Dates: start: 20230607, end: 20230719
  8. PAROXETINE [Concomitant]
     Active Substance: PAROXETINE
     Dosage: 10 MG, ONCE EVERY DAY, BASE
     Route: 048

REACTIONS (5)
  - Blepharitis [Not Recovered/Not Resolved]
  - Eyelid oedema [Not Recovered/Not Resolved]
  - Cataract [Not Recovered/Not Resolved]
  - Dry eye [Recovered/Resolved]
  - Conjunctivitis [Recovered/Resolved]
